FAERS Safety Report 25841444 (Version 2)
Quarter: 2025Q3

REPORT INFORMATION
  Report Type: Report from Study
  Country: US (occurrence: US)
  Receive Date: 20250924
  Receipt Date: 20250925
  Transmission Date: 20251020
  Serious: No
  Sender: BRISTOL-MYERS SQUIBB COMPANY
  Company Number: US-BRISTOL-MYERS SQUIBB COMPANY-2025-130440

PATIENT
  Age: 32 Year
  Sex: Female
  Weight: 52.16 kg

DRUGS (1)
  1. SOTYKTU [Suspect]
     Active Substance: DEUCRAVACITINIB
     Indication: Psoriasis
     Dosage: 6 MG ONCE DAILY TAKEN AT NIGHT AND TAKEN ORALLY
     Dates: start: 20250830

REACTIONS (6)
  - Acne cystic [Unknown]
  - Mouth ulceration [Unknown]
  - Therapy non-responder [Unknown]
  - Skin disorder [Unknown]
  - Acne [Unknown]
  - Skin texture abnormal [Unknown]

NARRATIVE: CASE EVENT DATE: 20250915
